FAERS Safety Report 10595168 (Version 1)
Quarter: 2014Q4

REPORT INFORMATION
  Report Type: Spontaneous
  Country: US (occurrence: None)
  Receive Date: 20141119
  Receipt Date: 20141119
  Transmission Date: 20150529
  Serious: Yes (Life-Threatening, Hospitalization, Other)
  Sender: FDA-Public Use
  Company Number: None

PATIENT
  Age: 69 Year
  Sex: Male

DRUGS (1)
  1. CETUXIMAB [Suspect]
     Active Substance: CETUXIMAB
     Indication: COLON CANCER
     Dosage: 876 MG ONCE IV
     Route: 042
     Dates: start: 20141104, end: 20141104

REACTIONS (7)
  - Dyspnoea [None]
  - Pruritus [None]
  - Anaphylactic reaction [None]
  - Infusion related reaction [None]
  - Acute kidney injury [None]
  - Urticaria [None]
  - Chest pain [None]

NARRATIVE: CASE EVENT DATE: 20141104
